FAERS Safety Report 9009505 (Version 1)
Quarter: 2013Q1

REPORT INFORMATION
  Report Type: Spontaneous
  Country: US (occurrence: US)
  Receive Date: 20130110
  Receipt Date: 20130110
  Transmission Date: 20140127
  Serious: Yes (Hospitalization)
  Sender: FDA-Public Use
  Company Number: US-GLAXOSMITHKLINE-A1007320A

PATIENT
  Age: 32 Year
  Sex: Female

DRUGS (2)
  1. LAMICTAL [Suspect]
     Indication: GRAND MAL CONVULSION
     Dosage: 50MG TWICE PER DAY
     Route: 065
     Dates: start: 201201
  2. TOPAMAX [Concomitant]

REACTIONS (3)
  - Dyspnoea [Recovered/Resolved]
  - Nervous system disorder [Recovered/Resolved]
  - Speech disorder [Recovered/Resolved]
